FAERS Safety Report 4682441-0 (Version None)
Quarter: 2005Q2

REPORT INFORMATION
  Report Type: 
  Country: None (occurrence: None)
  Receive Date: 20050602
  Receipt Date: 20050602
  Transmission Date: 20051028
  Serious: Yes (Hospitalization)
  Sender: FDA-Public Use
  Company Number: None

PATIENT
  Age: 73 Year
  Sex: Male
  Weight: 78.4723 kg

DRUGS (4)
  1. GENGRAF [Suspect]
     Indication: RENAL TRANSPLANT
     Dosage: 50 MG BID PO
     Route: 048
     Dates: start: 20030124, end: 20041028
  2. RAPAMUNE [Concomitant]
  3. CELLCEPT [Concomitant]
  4. PREDNISONE TAB [Concomitant]

REACTIONS (1)
  - DRUG TOXICITY [None]
